FAERS Safety Report 13796774 (Version 1)
Quarter: 2017Q3

REPORT INFORMATION
  Report Type: Report from Study
  Country: US (occurrence: US)
  Receive Date: 20170726
  Receipt Date: 20170726
  Transmission Date: 20171127
  Serious: No
  Sender: FDA-Public Use
  Company Number: US-AMGEN-USASL2017096656

PATIENT
  Sex: Male

DRUGS (2)
  1. KYPROLIS [Suspect]
     Active Substance: CARFILZOMIB
     Dosage: UNK, DAYS 1,8,15 EVERY 28 DAYS (1 DAY/WEEK X 3 WEEKS WITH A 1 WEEK REST PERIOD)
     Route: 065
  2. KYPROLIS [Suspect]
     Active Substance: CARFILZOMIB
     Indication: PLASMA CELL MYELOMA
     Dosage: UNK, 2 DAYS/WEEK WITH A 1 WEEK REST PERIOD
     Route: 065

REACTIONS (3)
  - Dysphonia [Unknown]
  - Musculoskeletal disorder [Unknown]
  - Off label use [Unknown]
